FAERS Safety Report 12969643 (Version 1)
Quarter: 2016Q4

REPORT INFORMATION
  Report Type: Spontaneous
  Country: US (occurrence: US)
  Receive Date: 20161123
  Receipt Date: 20161123
  Transmission Date: 20170207
  Serious: Yes (Hospitalization)
  Sender: FDA-Public Use
  Company Number: US-RELYPSA-RLY2016003860

PATIENT
  Age: 70 Year
  Sex: Female

DRUGS (11)
  1. BAYER ASPIRIN [Concomitant]
     Active Substance: ASPIRIN
  2. VITAMIN D                          /00107901/ [Concomitant]
     Active Substance: ERGOCALCIFEROL
  3. ALLOPURINOL. [Concomitant]
     Active Substance: ALLOPURINOL
  4. RANITIDINE. [Concomitant]
     Active Substance: RANITIDINE
  5. DULOXETINE. [Concomitant]
     Active Substance: DULOXETINE
  6. VANCOMYCIN [Concomitant]
     Active Substance: VANCOMYCIN
  7. PRILOSEC [Concomitant]
     Active Substance: OMEPRAZOLE MAGNESIUM
  8. VITAMINS WITH MINERALS [Concomitant]
     Active Substance: MINERALS\VITAMINS
  9. OXYCODONE AND ASPIRIN              /00554201/ [Concomitant]
  10. DIFICID [Concomitant]
     Active Substance: FIDAXOMICIN
  11. VELTASSA [Suspect]
     Active Substance: PATIROMER
     Indication: HYPERKALAEMIA
     Dosage: 8.4 G, QD
     Route: 048
     Dates: start: 20161018, end: 20161022

REACTIONS (1)
  - Porphyria acute [Recovering/Resolving]

NARRATIVE: CASE EVENT DATE: 20161018
